FAERS Safety Report 14659458 (Version 1)
Quarter: 2018Q1

REPORT INFORMATION
  Report Type: Spontaneous
  Country: US (occurrence: US)
  Receive Date: 20180320
  Receipt Date: 20180320
  Transmission Date: 20180509
  Serious: No
  Sender: FDA-Public Use
  Company Number: US-009507513-1609USA000972

PATIENT
  Age: 69 Year
  Sex: Male

DRUGS (9)
  1. TACROLIMUS. [Concomitant]
     Active Substance: TACROLIMUS
     Indication: IMMUNOSUPPRESSANT DRUG THERAPY
     Dosage: 1.5 MG, QD
     Dates: start: 20150728, end: 201509
  2. MYCOPHENOLATE MOFETIL. [Concomitant]
     Active Substance: MYCOPHENOLATE MOFETIL
     Dosage: REDUCED
     Dates: start: 201509
  3. TACROLIMUS. [Concomitant]
     Active Substance: TACROLIMUS
     Dosage: 1 MG, QD
     Dates: start: 20150728, end: 201509
  4. INTRON A [Suspect]
     Active Substance: INTERFERON ALFA-2B
     Indication: ST. LOUIS ENCEPHALITIS
     Dosage: 3 IU, QD
     Dates: start: 20150910, end: 20150924
  5. TACROLIMUS. [Concomitant]
     Active Substance: TACROLIMUS
     Dosage: REDUCED
     Dates: start: 201509
  6. PREDNISONE. [Concomitant]
     Active Substance: PREDNISONE
     Dosage: REDUCED
     Dates: start: 201509
  7. PREDNISONE. [Concomitant]
     Active Substance: PREDNISONE
     Indication: IMMUNOSUPPRESSANT DRUG THERAPY
     Dosage: 5 MG, QD
     Dates: start: 20150728, end: 201509
  8. GLOBULIN, IMMUNE [Concomitant]
     Active Substance: HUMAN IMMUNOGLOBULIN G
     Indication: ST. LOUIS ENCEPHALITIS
     Dosage: 400 MG/KG, QD
     Route: 042
     Dates: start: 20150910, end: 20150915
  9. MYCOPHENOLATE MOFETIL. [Concomitant]
     Active Substance: MYCOPHENOLATE MOFETIL
     Indication: IMMUNOSUPPRESSANT DRUG THERAPY
     Dosage: 1 G, BID
     Dates: start: 20150728, end: 201509

REACTIONS (1)
  - Off label use [Unknown]

NARRATIVE: CASE EVENT DATE: 20150910
